FAERS Safety Report 10120436 (Version 2)
Quarter: 2014Q2

REPORT INFORMATION
  Report Type: Spontaneous
  Country: AU (occurrence: AU)
  Receive Date: 20140425
  Receipt Date: 20140515
  Transmission Date: 20141212
  Serious: Yes (Hospitalization, Other)
  Sender: FDA-Public Use
  Company Number: AU-INCYTE CORPORATION-2014IN001077

PATIENT
  Age: 65 Year
  Sex: Male

DRUGS (1)
  1. JAKAVI [Suspect]
     Dosage: 5 MG
     Route: 048
     Dates: end: 20140408

REACTIONS (8)
  - Febrile neutropenia [Recovering/Resolving]
  - Thrombocytopenia [Not Recovered/Not Resolved]
  - Neutropenia [Recovering/Resolving]
  - Sepsis [Unknown]
  - Leukopenia [Unknown]
  - Anaemia [Unknown]
  - Contusion [Unknown]
  - Pyrexia [Not Recovered/Not Resolved]
